FAERS Safety Report 5386792-6 (Version None)
Quarter: 2007Q3

REPORT INFORMATION
  Report Type: 
  Country: None (occurrence: None)
  Receive Date: 20070713
  Receipt Date: 20070711
  Transmission Date: 20080115
  Serious: Yes (Other)
  Sender: FDA-Public Use
  Company Number: US-BRISTOL-MYERS SQUIBB COMPANY-13843552

PATIENT

DRUGS (1)
  1. DEFINITY [Suspect]
     Dates: start: 20070701, end: 20070701

REACTIONS (1)
  - ANAPHYLACTIC REACTION [None]
